FAERS Safety Report 7135616-5 (Version None)
Quarter: 2010Q4

REPORT INFORMATION
  Report Type: 
  Country: None (occurrence: None)
  Receive Date: 20101203
  Receipt Date: 20101122
  Transmission Date: 20110411
  Serious: Yes (Hospitalization)
  Sender: FDA-Public Use
  Company Number: US-ELI_LILLY_AND_COMPANY-US201010004552

PATIENT
  Sex: Female

DRUGS (13)
  1. FORTEO [Suspect]
     Indication: OSTEOPOROSIS
     Dosage: 20 UG, DAILY (1/D)
     Route: 065
  2. ASPIRIN [Concomitant]
  3. BUMETANIDE [Concomitant]
     Dosage: 20 MG, DAY AND NIGHT
     Route: 065
  4. CLONAZEPAM [Concomitant]
     Dosage: 1 MG, EACH EVENING
     Route: 065
  5. MULTIVITAMIN [Concomitant]
     Route: 065
  6. MULTIVITAMIN [Concomitant]
     Dosage: 2 D/F, EACH EVENING
  7. ISOSORBIDE DINITRATE [Concomitant]
     Dosage: 30 MG, MORNING AND EVENING
     Route: 065
  8. LOVASTATIN [Concomitant]
     Dosage: 40 MG, EACH MORNING
     Route: 065
  9. METOPROLOL [Concomitant]
     Dosage: 2.5 MG, IN THE MORNING AND NIGHT
     Route: 065
  10. TEMAZEPAM [Concomitant]
     Indication: SLEEP DISORDER
     Dosage: 15 MG, EACH EVENING
  11. METOLAZONE [Concomitant]
  12. LEVEMIR [Concomitant]
     Dosage: 40 U, 2/D
     Route: 065
  13. NOVOLOG [Concomitant]
     Dosage: SLIDING SCALE

REACTIONS (13)
  - ARTHRALGIA [None]
  - CARDIAC FAILURE CONGESTIVE [None]
  - CONSTIPATION [None]
  - CRYING [None]
  - DEPRESSION [None]
  - DEVICE OCCLUSION [None]
  - DYSPNOEA [None]
  - EMOTIONAL DISTRESS [None]
  - FLUID RETENTION [None]
  - JOINT RANGE OF MOTION DECREASED [None]
  - MEMORY IMPAIRMENT [None]
  - MUSCULOSKELETAL PAIN [None]
  - OEDEMA PERIPHERAL [None]
